FAERS Safety Report 21334412 (Version 1)
Quarter: 2022Q3

REPORT INFORMATION
  Report Type: Report from Study
  Country: US (occurrence: US)
  Receive Date: 20220914
  Receipt Date: 20220914
  Transmission Date: 20221027
  Serious: Yes (Other)
  Sender: FDA-Public Use
  Company Number: US-BRISTOL-MYERS SQUIBB COMPANY-2022-023579

PATIENT
  Age: 71 Year
  Sex: Male
  Weight: 101.15 kg

DRUGS (2)
  1. REVLIMID [Suspect]
     Active Substance: LENALIDOMIDE
     Indication: Plasma cell myeloma
     Dosage: 5 MG, DAILY 28 DAYS
     Route: 048
  2. REVLIMID [Suspect]
     Active Substance: LENALIDOMIDE
     Route: 048

REACTIONS (4)
  - Gastrointestinal disorder [Unknown]
  - Neuropathy peripheral [Unknown]
  - COVID-19 [Recovering/Resolving]
  - Animal scratch [Unknown]

NARRATIVE: CASE EVENT DATE: 20220817
